FAERS Safety Report 8179657-8 (Version None)
Quarter: 2012Q1

REPORT INFORMATION
  Report Type: 
  Country: None (occurrence: None)
  Receive Date: 20120229
  Receipt Date: 20120229
  Transmission Date: 20120608
  Serious: Yes (Life-Threatening, Disabling, Other)
  Sender: FDA-Public Use
  Company Number: None

PATIENT
  Age: 65 Year
  Sex: Male
  Weight: 117.9352 kg

DRUGS (14)
  1. POTASSIUM CHLORIDE [Concomitant]
  2. ALAVERT [Concomitant]
  3. AVAPRO [Concomitant]
  4. ASPIRIN - ST. JOSEPH'S ENTERIC COATED [Concomitant]
  5. PEPCID [Concomitant]
  6. FISH OIL [Concomitant]
  7. VYTORIN [Suspect]
     Indication: BLOOD CHOLESTEROL
     Dosage: ONE TABLET DAILY ORAL
     Route: 048
     Dates: start: 20100324, end: 20120122
  8. CARDURA [Concomitant]
  9. TRILIPIX [Concomitant]
  10. LEXAPRO [Concomitant]
  11. MULTIVITAMIN [Concomitant]
  12. DILTIAZEM HYDROCHLORIDE [Concomitant]
  13. LASIX [Concomitant]
  14. AVAPRO [Concomitant]

REACTIONS (1)
  - DYSPNOEA [None]
